FAERS Safety Report 9167816 (Version 4)
Quarter: 2013Q2

REPORT INFORMATION
  Report Type: Spontaneous
  Country: US (occurrence: US)
  Receive Date: 20130318
  Receipt Date: 20130531
  Transmission Date: 20140414
  Serious: Yes (Other)
  Sender: FDA-Public Use
  Company Number: US-PFIZER INC-2013086809

PATIENT
  Age: 66 Year
  Sex: Male
  Weight: 83 kg

DRUGS (13)
  1. LYRICA [Suspect]
     Indication: SCIATICA
     Dosage: 75 MG, 2X/DAY
     Route: 048
     Dates: start: 201212, end: 20130211
  2. LYRICA [Suspect]
     Indication: RADICULITIS
  3. LYRICA [Suspect]
     Indication: BACK PAIN
  4. LYRICA [Suspect]
     Indication: PAIN IN EXTREMITY
  5. JALYN [Concomitant]
     Indication: BENIGN PROSTATIC HYPERPLASIA
     Dosage: DUTASTERIDE 0.5MG/ TAMSULOSIN HYDROCHLORIDE 0.4MG, DAILY
  6. SYNTHROID [Concomitant]
     Indication: HYPOTHYROIDISM
     Dosage: 50MCG, 1X/DAY (QD)
  7. FLUTICASONE [Concomitant]
     Dosage: 2 PUFF, QD
  8. ASA [Concomitant]
     Dosage: 325 MG, 1X/DAY (QD)
  9. PREDNISONE [Concomitant]
     Dosage: 40 MG, UNK
  10. PREDNISONE [Concomitant]
     Dosage: 20 MG, UNK
  11. SONATA [Concomitant]
     Dosage: 10 MG, AS NEEDED (Q HS, PRN ONLY)
  12. TRAMADOL [Concomitant]
     Dosage: 50 MG, AS NEEDED (Q TO PRN - RARELY TAKEN)
  13. NIASPAN [Concomitant]
     Dosage: 500 MG, 1X/DAY (QD)

REACTIONS (3)
  - Visual acuity reduced [Not Recovered/Not Resolved]
  - Vision blurred [Not Recovered/Not Resolved]
  - Off label use [Recovered/Resolved]
